FAERS Safety Report 6201909-9 (Version None)
Quarter: 2009Q2

REPORT INFORMATION
  Report Type: 
  Country: None (occurrence: None)
  Receive Date: 20090526
  Receipt Date: 20090518
  Transmission Date: 20091009
  Serious: Yes (Other)
  Sender: FDA-Public Use
  Company Number: PHHY2009BR19468

PATIENT
  Sex: Female
  Weight: 26 kg

DRUGS (3)
  1. FORASEQ [Suspect]
     Indication: EMPHYSEMA
     Dosage: UNK
     Dates: start: 20060101, end: 20090501
  2. FORASEQ [Suspect]
     Dosage: UNK
     Dates: start: 20090516
  3. MULTI-VITAMINS [Concomitant]

REACTIONS (6)
  - APPETITE DISORDER [None]
  - ASTHENIA [None]
  - DEPRESSION [None]
  - DYSPNOEA [None]
  - MUSCULAR WEAKNESS [None]
  - TREATMENT NONCOMPLIANCE [None]
